FAERS Safety Report 8341235 (Version 2)
Quarter: 2013Q2

REPORT INFORMATION
  Report Type: Spontaneous
  Country: US (occurrence: None)
  Receive Date: 20111202
  Receipt Date: 20121203
  Transmission Date: 20140414
  Serious: Yes (Hospitalization, Disabling, Other)
  Sender: FDA-Public Use
  Company Number: 2011SP017862

PATIENT
  Age: 31 Year
  Sex: Female
  Weight: 50.3 kg

DRUGS (2)
  1. NUVARING (ETONOGESTREL (+) ETHINYL ESTRADIOL) VAGINAL RING [Suspect]
     Indication: CONTRACEPTION
     Dates: start: 200810, end: 200906
  2. NUVARING (ETONOGESTREL (+) ETHINYL ESTRADIOL) VAGINAL RING [Suspect]
     Indication: MENSTRUAL CYCLE MANAGEMENT
     Dates: start: 200810, end: 200906

REACTIONS (4)
  - PULMONARY EMBOLISM [None]
  - EMOTIONAL DISORDER [None]
  - UNINTENDED PREGNANCY [None]
  - MENTAL DISORDER [None]
